FAERS Safety Report 10206732 (Version 1)
Quarter: 2014Q2

REPORT INFORMATION
  Report Type: Spontaneous
  Country: GB (occurrence: GB)
  Receive Date: 20140530
  Receipt Date: 20140530
  Transmission Date: 20141212
  Serious: Yes (Life-Threatening, Other)
  Sender: FDA-Public Use
  Company Number: GB-ASTRAZENECA-2014SE37188

PATIENT
  Age: 3 Week
  Sex: Female
  Weight: 1 kg

DRUGS (4)
  1. MEROPENEM [Suspect]
     Indication: SEPSIS
     Route: 042
     Dates: start: 20140508, end: 20140512
  2. TEICOPLANIN [Suspect]
     Indication: SEPSIS
     Route: 051
     Dates: start: 20140508, end: 20140508
  3. TEICOPLANIN [Suspect]
     Indication: SEPSIS
     Route: 051
     Dates: start: 20140509, end: 20140512
  4. SODIUM INFUSION [Concomitant]
     Route: 051

REACTIONS (2)
  - Blood urea increased [Recovered/Resolved]
  - Nephropathy toxic [Unknown]
